FAERS Safety Report 10589978 (Version 1)
Quarter: 2014Q4

REPORT INFORMATION
  Report Type: Spontaneous
  Country: US (occurrence: None)
  Receive Date: 20141117
  Receipt Date: 20141117
  Transmission Date: 20150529
  Serious: Yes (Hospitalization)
  Sender: FDA-Public Use
  Company Number: None

PATIENT
  Age: 81 Year
  Sex: Male
  Weight: 83.2 kg

DRUGS (2)
  1. HYDROCHLOROTHIAZIDE/LISINOPRIL [Suspect]
     Active Substance: HYDROCHLOROTHIAZIDE\LISINOPRIL
     Dosage: 1 TAB EVERY DAY PO
     Route: 048
     Dates: start: 20140630, end: 20141002
  2. FUROSEMIDE. [Suspect]
     Active Substance: FUROSEMIDE
     Indication: HYPERTENSION
     Dosage: 40 MG EVERY DAY PO
     Route: 048
     Dates: start: 20130906, end: 20141002

REACTIONS (5)
  - Confusional state [None]
  - Hypotension [None]
  - Dehydration [None]
  - Hypoxia [None]
  - Hyponatraemia [None]

NARRATIVE: CASE EVENT DATE: 20141002
